FAERS Safety Report 5938226-8 (Version None)
Quarter: 2008Q4

REPORT INFORMATION
  Report Type: 
  Country: None (occurrence: None)
  Receive Date: 20081031
  Receipt Date: 20081020
  Transmission Date: 20090506
  Serious: Yes (Other)
  Sender: FDA-Public Use
  Company Number: US-PFIZER INC-2008088988

PATIENT
  Sex: Female
  Weight: 81.818 kg

DRUGS (2)
  1. CHANTIX [Suspect]
     Dates: start: 20081001
  2. ALL OTHER THERAPEUTIC PRODUCTS [Concomitant]

REACTIONS (7)
  - AGGRESSION [None]
  - ANGER [None]
  - FEAR [None]
  - HOMICIDAL IDEATION [None]
  - INSOMNIA [None]
  - INTENTIONAL DRUG MISUSE [None]
  - MEDICATION ERROR [None]
